FAERS Safety Report 6204855-X (Version None)
Quarter: 2009Q2

REPORT INFORMATION
  Report Type: 
  Country: None (occurrence: None)
  Receive Date: 20090522
  Receipt Date: 20090508
  Transmission Date: 20091009
  Serious: Yes (Hospitalization)
  Sender: FDA-Public Use
  Company Number: KV200900392

PATIENT
  Age: 69 Year
  Sex: Male
  Weight: 190 kg

DRUGS (2)
  1. ISOSORBIDE MONONITRATE [Suspect]
     Indication: ANGINA PECTORIS
     Dosage: 60 MG, QD, ORAL
     Route: 048
     Dates: start: 19950101
  2. ISOSORBIDE MONONITRATE [Suspect]
     Indication: CARDIAC DISORDER
     Dosage: 60 MG, QD, ORAL
     Route: 048
     Dates: start: 19950101

REACTIONS (6)
  - CARDIAC DISORDER [None]
  - DIZZINESS [None]
  - FALL [None]
  - FRACTURE [None]
  - MYOCARDIAL INFARCTION [None]
  - PRODUCT QUALITY ISSUE [None]
